FAERS Safety Report 7624804-7 (Version None)
Quarter: 2011Q3

REPORT INFORMATION
  Report Type: 
  Country: None (occurrence: None)
  Receive Date: 20110720
  Receipt Date: 20110718
  Transmission Date: 20111222
  Serious: Yes (Hospitalization, Other)
  Sender: FDA-Public Use
  Company Number: FR-PFIZER INC-2011141859

PATIENT
  Age: 51 Year
  Sex: Female

DRUGS (9)
  1. PHOLCODINE [Concomitant]
  2. LYRICA [Suspect]
     Indication: NEUROPATHY PERIPHERAL
     Dosage: UNK
     Route: 048
     Dates: start: 20100212, end: 20110415
  3. INDAPAMIDE [Concomitant]
  4. LANTUS [Concomitant]
     Route: 059
  5. CRESTOR [Suspect]
     Indication: HYPERCHOLESTEROLAEMIA
     Dosage: UNK
     Route: 048
     Dates: start: 20091006, end: 20110415
  6. ACETAMINOPHEN [Concomitant]
  7. AMLODIPINE BESYLATE/OLMESARTAN MEDOXEMIL [Suspect]
     Indication: HYPERTENSION
     Dosage: UNK
     Route: 048
     Dates: start: 20110324, end: 20110415
  8. NEBIVOLOL [Concomitant]
     Dosage: UNK
     Route: 048
     Dates: start: 20110324
  9. GLIMEPIRIDE [Concomitant]
     Route: 048

REACTIONS (1)
  - HEPATITIS CHOLESTATIC [None]
